FAERS Safety Report 26218755 (Version 1)
Quarter: 2025Q4

REPORT INFORMATION
  Report Type: Spontaneous
  Country: GB (occurrence: GB)
  Receive Date: 20251231
  Receipt Date: 20251231
  Transmission Date: 20260117
  Serious: Yes (Other)
  Sender: SANDOZ
  Company Number: GB-002147023-NVSC2025GB198192

PATIENT
  Age: 52 Year
  Sex: Male

DRUGS (3)
  1. CIPROFLOXACIN [Suspect]
     Active Substance: CIPROFLOXACIN
     Indication: Mycobacterial infection
     Dosage: UNK
  2. ETHAMBUTOL [Concomitant]
     Active Substance: ETHAMBUTOL HYDROCHLORIDE
     Indication: Mycobacterial infection
     Dosage: UNK
  3. AMIKACIN [Concomitant]
     Active Substance: AMIKACIN
     Indication: Mycobacterial infection
     Dosage: UNK

REACTIONS (2)
  - Mycobacterial infection [Unknown]
  - Tenosynovitis [Unknown]
